FAERS Safety Report 7476463-4 (Version None)
Quarter: 2011Q2

REPORT INFORMATION
  Report Type: 
  Country: None (occurrence: None)
  Receive Date: 20110510
  Receipt Date: 20110510
  Transmission Date: 20111010
  Serious: Yes (Hospitalization)
  Sender: FDA-Public Use
  Company Number: None

PATIENT
  Age: 63 Year
  Sex: Male
  Weight: 63.5036 kg

DRUGS (4)
  1. VANCOMYCIN [Suspect]
     Indication: CELLULITIS
     Dosage: 1 GM BID IV
     Route: 042
     Dates: start: 20110402, end: 20110413
  2. VANCOMYCIN [Suspect]
     Indication: SKIN ULCER
     Dosage: 1 GM BID IV
     Route: 042
     Dates: start: 20110402, end: 20110413
  3. CEFTRIAXONE [Suspect]
     Indication: SKIN ULCER
     Dosage: 2 GM EVERY DAY IV
     Route: 042
     Dates: start: 20110406, end: 20110411
  4. CEFTRIAXONE [Suspect]
     Indication: CELLULITIS
     Dosage: 2 GM EVERY DAY IV
     Route: 042
     Dates: start: 20110406, end: 20110411

REACTIONS (1)
  - ACUTE GENERALISED EXANTHEMATOUS PUSTULOSIS [None]
